FAERS Safety Report 17747331 (Version 2)
Quarter: 2020Q2

REPORT INFORMATION
  Report Type: Spontaneous
  Country: FR (occurrence: FR)
  Receive Date: 20200505
  Receipt Date: 20200526
  Transmission Date: 20200714
  Serious: Yes (Other)
  Sender: FDA-Public Use
  Company Number: FR-ALLERGAN-2018007US

PATIENT
  Sex: Male

DRUGS (1)
  1. OZURDEX [Suspect]
     Active Substance: DEXAMETHASONE
     Indication: DIABETIC RETINAL OEDEMA
     Dosage: 0.7 MG, SINGLE
     Route: 031
     Dates: start: 201911, end: 201911

REACTIONS (5)
  - Intraocular pressure decreased [Not Recovered/Not Resolved]
  - Blindness unilateral [Not Recovered/Not Resolved]
  - Necrotising retinitis [Recovered/Resolved with Sequelae]
  - Retinitis viral [Recovered/Resolved with Sequelae]
  - Retinal detachment [Unknown]

NARRATIVE: CASE EVENT DATE: 202001
